FAERS Safety Report 20300075 (Version 1)
Quarter: 2022Q1

REPORT INFORMATION
  Report Type: Other
  Country: US (occurrence: None)
  Receive Date: 20220105
  Receipt Date: 20220105
  Transmission Date: 20220423
  Serious: Yes (Other)
  Sender: FDA-Public Use
  Company Number: US-ROCHE-2987886

PATIENT
  Sex: Male
  Weight: 35.3 kg

DRUGS (2)
  1. NUTROPIN [Suspect]
     Active Substance: SOMATROPIN
     Indication: Hypopituitarism
     Dosage: 10MG/2ML
     Route: 058
     Dates: start: 202101
  2. NUTROPIN [Suspect]
     Active Substance: SOMATROPIN

REACTIONS (4)
  - Growth retardation [Unknown]
  - Back pain [Unknown]
  - Pain in extremity [Unknown]
  - Abdominal pain upper [Unknown]
